FAERS Safety Report 8265249-9 (Version None)
Quarter: 2012Q2

REPORT INFORMATION
  Report Type: 
  Country: None (occurrence: None)
  Receive Date: 20120406
  Receipt Date: 20120327
  Transmission Date: 20120825
  Serious: Yes (Other)
  Sender: FDA-Public Use
  Company Number: JP-ELI_LILLY_AND_COMPANY-JP201106002310

PATIENT
  Age: 71 Year
  Sex: Female

DRUGS (1)
  1. FORTEO [Suspect]
     Dosage: UNK
     Route: 058
     Dates: start: 20110301

REACTIONS (8)
  - CONSTIPATION [None]
  - ITCHING SCAR [None]
  - FALL [None]
  - ERYTHEMA [None]
  - ARTHROPOD STING [None]
  - FOOT FRACTURE [None]
  - PURPURA [None]
  - BONE DENSITY DECREASED [None]
